FAERS Safety Report 21866031 (Version 1)
Quarter: 2023Q1

REPORT INFORMATION
  Report Type: Spontaneous
  Country: US (occurrence: US)
  Receive Date: 20230116
  Receipt Date: 20230116
  Transmission Date: 20230417
  Serious: Yes (Hospitalization)
  Sender: FDA-Public Use
  Company Number: US-GLAXOSMITHKLINE-US2023005629

PATIENT

DRUGS (1)
  1. LAMICTAL [Suspect]
     Active Substance: LAMOTRIGINE
     Indication: Epilepsy
     Dosage: 1 DF (TABLET), BID
     Dates: start: 20190601

REACTIONS (3)
  - Hospitalisation [Recovered/Resolved]
  - Physiotherapy [Recovered/Resolved]
  - Rehabilitation therapy [Recovered/Resolved]

NARRATIVE: CASE EVENT DATE: 20220801
